FAERS Safety Report 14689734 (Version 1)
Quarter: 2018Q1

REPORT INFORMATION
  Report Type: Spontaneous
  Country: US (occurrence: US)
  Receive Date: 20180327
  Receipt Date: 20180327
  Transmission Date: 20180509
  Serious: Yes (Other)
  Sender: FDA-Public Use
  Company Number: None

PATIENT
  Age: 58 Year
  Sex: Male
  Weight: 69.7 kg

DRUGS (6)
  1. NINTEDANIB [Suspect]
     Active Substance: NINTEDANIB
     Indication: PULMONARY FIBROSIS
     Route: 048
     Dates: start: 20161206
  2. ATORVASTATIN [Concomitant]
     Active Substance: ATORVASTATIN
     Dates: start: 20161121
  3. LOPERAMIDE [Concomitant]
     Active Substance: LOPERAMIDE
     Dates: start: 20170301
  4. OMEPRAZOLE. [Concomitant]
     Active Substance: OMEPRAZOLE
     Dates: start: 20170531
  5. COMBIVENT RESPIMAT [Concomitant]
     Active Substance: ALBUTEROL SULFATE\IPRATROPIUM BROMIDE
     Dates: start: 20161121
  6. SYMBICORT [Concomitant]
     Active Substance: BUDESONIDE\FORMOTEROL FUMARATE DIHYDRATE
     Dates: start: 20161121

REACTIONS (2)
  - Thrombocytopenia [None]
  - Anaemia [None]

NARRATIVE: CASE EVENT DATE: 20170926
